FAERS Safety Report 4695864-0 (Version None)
Quarter: 2005Q2

REPORT INFORMATION
  Report Type: 
  Country: None (occurrence: None)
  Receive Date: 20050621
  Receipt Date: 20050615
  Transmission Date: 20051028
  Serious: Yes (Death, Life-Threatening, Hospitalization)
  Sender: FDA-Public Use
  Company Number: US-SANOFI-SYNTHELABO-D01200504326

PATIENT
  Sex: Male
  Weight: 106.7 kg

DRUGS (24)
  1. OXALIPLATIN [Suspect]
     Indication: GASTROINTESTINAL CANCER METASTATIC
     Route: 042
     Dates: start: 20050513, end: 20050513
  2. OXALIPLATIN [Suspect]
     Indication: OESOPHAGEAL ADENOCARCINOMA STAGE IV
     Route: 042
     Dates: start: 20050513, end: 20050513
  3. FLUOROURACIL [Suspect]
     Dosage: 300 MG/M2 IV BOLUS FOLLOWED BY 500 MG/M2 IV CONTINUOUS INFUSION, D1-D2, Q2W
     Route: 042
     Dates: start: 20050513, end: 20050515
  4. LEUCOVORIN [Suspect]
     Route: 042
     Dates: start: 20050513, end: 20050514
  5. MILK OF MAGNESIA [Concomitant]
     Dosage: UNK
     Route: 065
     Dates: start: 20050419
  6. SENNA [Concomitant]
     Dosage: UNK
     Route: 065
     Dates: start: 20050419
  7. NEUPOGEN [Concomitant]
     Dosage: UNK
     Route: 065
     Dates: start: 20050420, end: 20050424
  8. NEUPOGEN [Concomitant]
     Dosage: UNK
     Route: 065
     Dates: start: 20050511, end: 20050512
  9. PREPARATION H [Concomitant]
     Dosage: UNK
     Route: 065
     Dates: start: 20050424
  10. NORMAL SALINE [Concomitant]
     Dosage: UNK
     Route: 065
     Dates: start: 20050420
  11. REMERON [Concomitant]
     Dosage: UNK
     Route: 065
     Dates: start: 20050511
  12. LORAZEPAM [Concomitant]
     Dosage: UNK
     Route: 065
     Dates: start: 20050511
  13. HYDROCHLOROTHIAZIDE [Concomitant]
     Dosage: UNK
     Route: 065
     Dates: start: 20050111, end: 20050602
  14. LIPITOR [Concomitant]
     Dosage: UNK
     Route: 065
     Dates: start: 20050111, end: 20050602
  15. PREVACID [Concomitant]
     Dosage: UNK
     Route: 065
     Dates: end: 20050602
  16. ASPIRIN [Concomitant]
  17. PROPRANOLOL [Concomitant]
     Dosage: UNK
     Route: 065
     Dates: start: 20011120, end: 20050601
  18. ZOFRAN [Concomitant]
     Dosage: UNK
     Route: 065
     Dates: start: 20050406
  19. WARFARIN [Concomitant]
     Dosage: UNK
     Route: 065
     Dates: start: 20050406
  20. DEXAMETHASONE [Concomitant]
     Dosage: UNK
     Route: 065
     Dates: start: 20050406
  21. PROCHLORPERAZINE [Concomitant]
     Dosage: UNK
     Route: 065
     Dates: start: 20050406
  22. LOPERAMIDE [Concomitant]
     Dosage: UNK
     Route: 065
     Dates: start: 20050406
  23. POTASSIUM CHLORIDE [Concomitant]
     Dosage: UNK
     Route: 065
     Dates: start: 20050420, end: 20050420
  24. AMBIEN [Concomitant]
     Dosage: UNK
     Route: 065
     Dates: start: 20050413

REACTIONS (13)
  - AGGRESSION [None]
  - ARRHYTHMIA [None]
  - BACK PAIN [None]
  - BACTERIAL SEPSIS [None]
  - BELLIGERENCE [None]
  - CHILLS [None]
  - CONFUSIONAL STATE [None]
  - ESCHERICHIA INFECTION [None]
  - LACUNAR INFARCTION [None]
  - MENTAL STATUS CHANGES [None]
  - NEUTROPENIA [None]
  - OXYGEN SATURATION DECREASED [None]
  - REFUSAL OF TREATMENT BY PATIENT [None]
